FAERS Safety Report 21628274 (Version 1)
Quarter: 2022Q4

REPORT INFORMATION
  Report Type: Report from Study
  Country: US (occurrence: US)
  Receive Date: 20221122
  Receipt Date: 20221122
  Transmission Date: 20230112
  Serious: Yes (Other)
  Sender: FDA-Public Use
  Company Number: US-GILEAD-2022-0605852

PATIENT
  Sex: Female

DRUGS (25)
  1. AZTREONAM LYSINE [Suspect]
     Active Substance: AZTREONAM LYSINE
     Indication: Bacterial disease carrier
     Dosage: RECONSTITUTE WITH 1ML SUPPLIED DILUENT + NEBULIZE 3 TIMES DAILY FOR 28 DAYS ON, 28 DAYS OFF ALTERNAT
     Route: 065
  2. NASONEX [Concomitant]
     Active Substance: MOMETASONE FUROATE
  3. OMEPRAZOLE [Concomitant]
     Active Substance: OMEPRAZOLE
     Dosage: UNK MG
  4. CHILDRENS LORATADINE [Concomitant]
     Active Substance: LORATADINE
  5. PULMICORT TURBUHALER [Concomitant]
     Active Substance: BUDESONIDE
  6. SODIUM CHLORIDE [Concomitant]
     Active Substance: SODIUM CHLORIDE
  7. XOPENEX [Concomitant]
     Active Substance: LEVALBUTEROL HYDROCHLORIDE
  8. IPRATROPIUM BROMIDE [Concomitant]
     Active Substance: IPRATROPIUM BROMIDE
  9. MONTELUKAST SODIUM [Concomitant]
     Active Substance: MONTELUKAST SODIUM
  10. AZELASTINE HYDROCHLORIDE [Concomitant]
     Active Substance: AZELASTINE HYDROCHLORIDE
  11. MIRALAX [Concomitant]
     Active Substance: POLYETHYLENE GLYCOL 3350
  12. LAMOTRIGINE [Concomitant]
     Active Substance: LAMOTRIGINE
  13. BACLOFEN [Concomitant]
     Active Substance: BACLOFEN
  14. ONFI [Concomitant]
     Active Substance: CLOBAZAM
  15. PRIMIDONE [Concomitant]
     Active Substance: PRIMIDONE
  16. LEVETIRACETAM [Concomitant]
     Active Substance: LEVETIRACETAM
  17. DIASTAT ACUDIAL [Concomitant]
     Active Substance: DIAZEPAM
  18. BACITRACIN [Concomitant]
     Active Substance: BACITRACIN
  19. VIMPAT [Concomitant]
     Active Substance: LACOSAMIDE
  20. NUTREN 2.0 [Concomitant]
  21. VITAMIN D3, D2000 ULTRA STRENGTH [Concomitant]
  22. LORATADINE [Concomitant]
     Active Substance: LORATADINE
  23. IBUPROFEN [Concomitant]
     Active Substance: IBUPROFEN
  24. BACTRIM [Concomitant]
     Active Substance: SULFAMETHOXAZOLE\TRIMETHOPRIM
  25. MINERALS\VITAMINS [Concomitant]
     Active Substance: MINERALS\VITAMINS

REACTIONS (1)
  - Mitochondrial myopathy [Unknown]
